FAERS Safety Report 23499006 (Version 2)
Quarter: 2024Q1

REPORT INFORMATION
  Report Type: Spontaneous
  Country: US (occurrence: US)
  Receive Date: 20240208
  Receipt Date: 20240328
  Transmission Date: 20240409
  Serious: Yes (Life-Threatening, Hospitalization, Other)
  Sender: FDA-Public Use
  Company Number: US-APOTEX-2024AP001868

PATIENT
  Age: 52 Year
  Sex: Male

DRUGS (2)
  1. SIROLIMUS [Interacting]
     Active Substance: SIROLIMUS
     Indication: Immunosuppressant drug therapy
     Dosage: 1 MILLIGRAM, QD
     Route: 048
  2. LISINOPRIL [Interacting]
     Active Substance: LISINOPRIL
     Indication: Product used for unknown indication
     Dosage: 5 MILLIGRAM, QD
     Route: 065

REACTIONS (2)
  - Drug interaction [Recovering/Resolving]
  - Angioedema [Recovering/Resolving]
